FAERS Safety Report 7978436-1 (Version None)
Quarter: 2011Q4

REPORT INFORMATION
  Report Type: 
  Country: None (occurrence: None)
  Receive Date: 20111207
  Receipt Date: 20111129
  Transmission Date: 20120403
  Serious: Yes (Life-Threatening)
  Sender: FDA-Public Use
  Company Number: DSA_48297_2011

PATIENT
  Sex: Male

DRUGS (1)
  1. XENAZINE [Suspect]
     Indication: TIC
     Dosage: 25 MG, 125 MG DAILY ORAL
     Route: 048
     Dates: start: 20110813

REACTIONS (2)
  - RETCHING [None]
  - SALIVARY HYPERSECRETION [None]
